FAERS Safety Report 7255686-3 (Version None)
Quarter: 2011Q1

REPORT INFORMATION
  Report Type: 
  Country: None (occurrence: None)
  Receive Date: 20110129
  Receipt Date: 20100829
  Transmission Date: 20110831
  Serious: No
  Sender: FDA-Public Use
  Company Number: US-ABBOTT-10P-163-0666950-00

PATIENT
  Age: 35 Year
  Sex: Male

DRUGS (2)
  1. IMURAN [Concomitant]
     Indication: PRODUCT USED FOR UNKNOWN INDICATION
  2. HUMIRA [Suspect]
     Indication: CROHN'S DISEASE
     Dates: start: 20100714

REACTIONS (5)
  - OROPHARYNGEAL PAIN [None]
  - THROAT IRRITATION [None]
  - COUGH [None]
  - MALAISE [None]
  - PRODUCTIVE COUGH [None]
